FAERS Safety Report 20993905 (Version 1)
Quarter: 2022Q2

REPORT INFORMATION
  Report Type: Spontaneous
  Country: US (occurrence: US)
  Receive Date: 20220622
  Receipt Date: 20220622
  Transmission Date: 20220721
  Serious: No
  Sender: FDA-Public Use
  Company Number: US-BRISTOL-MYERS SQUIBB COMPANY-2022-061931

PATIENT
  Age: 66 Year
  Sex: Male
  Weight: 63.05 kg

DRUGS (1)
  1. REVLIMID [Suspect]
     Active Substance: LENALIDOMIDE
     Indication: Plasma cell myeloma
     Dosage: FREQUENCY-28 DAYS.
     Route: 048
     Dates: start: 20220506, end: 20220527

REACTIONS (6)
  - Vision blurred [Unknown]
  - Abdominal pain upper [Unknown]
  - Rash [Unknown]
  - Muscle spasms [Unknown]
  - Decreased appetite [Unknown]
  - Nipple pain [Unknown]

NARRATIVE: CASE EVENT DATE: 20220620
